FAERS Safety Report 13972815 (Version 1)
Quarter: 2017Q3

REPORT INFORMATION
  Report Type: Spontaneous
  Country: US (occurrence: US)
  Receive Date: 20170914
  Receipt Date: 20170914
  Transmission Date: 20171128
  Serious: Yes (Other)
  Sender: FDA-Public Use
  Company Number: US-LPDUSPRD-20170631

PATIENT
  Age: 39 Year
  Sex: Female

DRUGS (2)
  1. TIROSINT [Concomitant]
     Active Substance: LEVOTHYROXINE SODIUM
     Dosage: DOSE NOT PROVIDED
     Route: 065
  2. INJECTAFER [Suspect]
     Active Substance: FERRIC CARBOXYMALTOSE
     Dosage: 750 MG
     Route: 042
     Dates: start: 20170307, end: 20170314

REACTIONS (5)
  - Pain in extremity [Not Recovered/Not Resolved]
  - Arthralgia [None]
  - Blood phosphorus decreased [Unknown]
  - Back pain [None]
  - Myalgia [None]

NARRATIVE: CASE EVENT DATE: 201703
